FAERS Safety Report 14416645 (Version 4)
Quarter: 2019Q1

REPORT INFORMATION
  Report Type: Spontaneous
  Country: FR (occurrence: FR)
  Receive Date: 20180122
  Receipt Date: 20190320
  Transmission Date: 20190417
  Serious: Yes (Other)
  Sender: FDA-Public Use
  Company Number: FR-ACCORD-062871

PATIENT
  Age: 46 Year
  Sex: Female

DRUGS (4)
  1. CYCLOPHOSPHAMIDE/CYCLOPHOSPHAMIDE MONOHYDRATE [Suspect]
     Active Substance: CYCLOPHOSPHAMIDE
     Indication: INVASIVE DUCTAL BREAST CARCINOMA
     Dosage: THREE CYCLES
     Dates: start: 201005, end: 201009
  2. FLUOROURACIL. [Suspect]
     Active Substance: FLUOROURACIL
     Indication: INVASIVE DUCTAL BREAST CARCINOMA
     Dosage: THREE CYCLES
     Dates: start: 201005, end: 201009
  3. EPIRUBICIN [Suspect]
     Active Substance: EPIRUBICIN
     Indication: INVASIVE DUCTAL BREAST CARCINOMA
     Dosage: THREE CYCLES
     Dates: start: 201005, end: 201009
  4. DOCETAXEL. [Suspect]
     Active Substance: DOCETAXEL
     Indication: INVASIVE DUCTAL BREAST CARCINOMA
     Dosage: THREE CYCLES
     Dates: start: 201005, end: 201009

REACTIONS (2)
  - Decreased appetite [None]
  - Sarcoidosis [Recovering/Resolving]
